FAERS Safety Report 9266324 (Version 2)
Quarter: 2013Q2

REPORT INFORMATION
  Report Type: Report from Study
  Country: PL (occurrence: PL)
  Receive Date: 20130502
  Receipt Date: 20130517
  Transmission Date: 20140414
  Serious: Yes (Hospitalization)
  Sender: FDA-Public Use
  Company Number: PL-BIOGENIDEC-2013BI019643

PATIENT
  Age: 34 Year
  Sex: Female
  Weight: 56 kg

DRUGS (3)
  1. BG00012 [Suspect]
     Indication: MULTIPLE SCLEROSIS
     Dates: start: 20110404, end: 20120903
  2. IBUPROFEN [Concomitant]
  3. MERCILON [Concomitant]
     Indication: CONTRACEPTION

REACTIONS (1)
  - Rectal abscess [Recovered/Resolved]
